FAERS Safety Report 19360489 (Version 1)
Quarter: 2021Q2

REPORT INFORMATION
  Report Type: Report from Study
  Country: None (occurrence: US)
  Receive Date: 20210602
  Receipt Date: 20210602
  Transmission Date: 20210717
  Serious: No
  Sender: FDA-Public Use
  Company Number: US-MDD US OPERATIONS-USW202006-001337

PATIENT
  Age: 74 Year
  Sex: Female

DRUGS (5)
  1. SINEMET 25?100 [Concomitant]
     Dosage: 25MG?100MG
  2. APOKYN [Suspect]
     Active Substance: APOMORPHINE HYDROCHLORIDE
     Indication: PARKINSON^S DISEASE
     Dosage: UP TO 0.2 ML/DOSE
     Route: 058
  3. BENZTROPINE MESYLATE. [Concomitant]
     Active Substance: BENZTROPINE MESYLATE
  4. AMANTADINE. [Concomitant]
     Active Substance: AMANTADINE HYDROCHLORIDE
  5. ROPINIROLE. [Concomitant]
     Active Substance: ROPINIROLE

REACTIONS (3)
  - Rhinorrhoea [Not Recovered/Not Resolved]
  - Epistaxis [Unknown]
  - Rhinorrhoea [Unknown]

NARRATIVE: CASE EVENT DATE: 2020
